FAERS Safety Report 20448769 (Version 1)
Quarter: 2022Q1

REPORT INFORMATION
  Report Type: Spontaneous
  Country: US (occurrence: None)
  Receive Date: 20220208
  Receipt Date: 20220208
  Transmission Date: 20220423
  Serious: Yes (Hospitalization)
  Sender: FDA-Public Use
  Company Number: None

PATIENT
  Sex: Female

DRUGS (5)
  1. RASUVO [Suspect]
     Active Substance: METHOTREXATE SODIUM
     Indication: Haemophagocytic lymphohistiocytosis
     Dosage: FREQUENCY : WEEKLY;?
     Route: 058
     Dates: start: 202009
  2. RASUVO [Suspect]
     Active Substance: METHOTREXATE SODIUM
     Indication: Pulmonary hypertension
  3. RASUVO [Suspect]
     Active Substance: METHOTREXATE SODIUM
     Indication: Pulmonary arterial hypertension
  4. RASUVO [Suspect]
     Active Substance: METHOTREXATE SODIUM
     Indication: Neutropenia
  5. RASUVO [Suspect]
     Active Substance: METHOTREXATE SODIUM
     Indication: Rheumatoid arthritis

REACTIONS (1)
  - Hospitalisation [None]
